FAERS Safety Report 6822008-9 (Version None)
Quarter: 2010Q3

REPORT INFORMATION
  Report Type: 
  Country: None (occurrence: None)
  Receive Date: 20100708
  Receipt Date: 20100630
  Transmission Date: 20110219
  Serious: Yes (Hospitalization, Other)
  Sender: FDA-Public Use
  Company Number: CA-JNJFOC-20100700867

PATIENT
  Sex: Male

DRUGS (6)
  1. USTEKINUMAB [Suspect]
     Indication: PSORIASIS
     Route: 058
  2. USTEKINUMAB [Suspect]
     Route: 058
  3. PLACEBO [Suspect]
     Indication: PSORIASIS
     Route: 058
  4. LANTUS [Concomitant]
     Indication: DIABETES MELLITUS
     Route: 058
  5. GLYBURIDE [Concomitant]
     Route: 048
  6. SYNTHROID [Concomitant]
     Indication: HYPERTHYROIDISM
     Route: 042

REACTIONS (1)
  - LYMPHADENOPATHY [None]
